FAERS Safety Report 5709516-9 (Version None)
Quarter: 2008Q2

REPORT INFORMATION
  Report Type: 
  Country: None (occurrence: None)
  Receive Date: 20080418
  Receipt Date: 20080409
  Transmission Date: 20081010
  Serious: Yes (Hospitalization)
  Sender: FDA-Public Use
  Company Number: US-GILEAD-2008-0015246

PATIENT
  Sex: Female
  Weight: 77.18 kg

DRUGS (16)
  1. LETAIRIS [Suspect]
     Indication: PULMONARY HYPERTENSION
     Route: 048
     Dates: start: 20071001
  2. REVATIO [Concomitant]
     Route: 048
  3. COUMADIN [Concomitant]
     Route: 048
  4. LASIX [Concomitant]
     Route: 048
  5. PREDNISONE [Concomitant]
     Route: 048
  6. ATENOLOL [Concomitant]
     Route: 048
  7. DIGOXIN [Concomitant]
     Route: 048
  8. CALCIUM [Concomitant]
     Route: 048
  9. DARVOCET-N [Concomitant]
     Indication: CLUSTER HEADACHE
  10. XANAX [Concomitant]
     Indication: ANXIETY
  11. RESTORIL [Concomitant]
     Indication: INSOMNIA
  12. VERAPAMIL [Concomitant]
  13. ELAVIL [Concomitant]
  14. SENOKOT [Concomitant]
  15. ALDACTONE [Concomitant]
  16. OXYGEN [Concomitant]
     Route: 055

REACTIONS (2)
  - CARDIAC FAILURE CONGESTIVE [None]
  - OEDEMA [None]
